FAERS Safety Report 5521382-3 (Version None)
Quarter: 2007Q4

REPORT INFORMATION
  Report Type: 
  Country: None (occurrence: None)
  Receive Date: 20071119
  Receipt Date: 20071108
  Transmission Date: 20080405
  Serious: Yes (Hospitalization)
  Sender: FDA-Public Use
  Company Number: JP-GILEAD-2007-0014327

PATIENT
  Age: 57 Year
  Sex: Male

DRUGS (2)
  1. TRUVADA [Suspect]
     Indication: HIV INFECTION
     Route: 048
  2. EFAVIRENZ [Suspect]
     Indication: HIV INFECTION
     Route: 065

REACTIONS (1)
  - MYASTHENIA GRAVIS [None]
